FAERS Safety Report 5572524-5 (Version None)
Quarter: 2007Q4

REPORT INFORMATION
  Report Type: 
  Country: None (occurrence: None)
  Receive Date: 20071222
  Receipt Date: 20071214
  Transmission Date: 20080405
  Serious: Yes (Other)
  Sender: FDA-Public Use
  Company Number: DE-PFIZER INC-2007106296

PATIENT
  Age: 70 Year
  Sex: Female

DRUGS (8)
  1. AROMASIN [Suspect]
     Indication: BREAST CANCER
     Route: 048
  2. PHENPROCOUMON [Interacting]
     Indication: PROPHYLAXIS
     Route: 048
  3. NOVODIGAL [Concomitant]
  4. ISOSORBIDE MONONITRATE [Concomitant]
  5. BETA BLOCKING AGENTS [Concomitant]
  6. ASCORBIC ACID [Concomitant]
  7. AREDIA [Concomitant]
  8. ASPIRIN [Concomitant]

REACTIONS (7)
  - AMAUROSIS FUGAX [None]
  - ARTHRALGIA [None]
  - DRUG INTERACTION [None]
  - HYPERCHOLESTEROLAEMIA [None]
  - HYPERTRICHOSIS [None]
  - MACROSOMIA [None]
  - PROTHROMBIN TIME ABNORMAL [None]
